FAERS Safety Report 19660204 (Version 1)
Quarter: 2021Q3

REPORT INFORMATION
  Report Type: Spontaneous
  Country: US (occurrence: US)
  Receive Date: 20210805
  Receipt Date: 20210805
  Transmission Date: 20211014
  Serious: No
  Sender: FDA-Public Use
  Company Number: US-BAUSCH-BL-2021-022728

PATIENT
  Age: 84 Year
  Sex: Male

DRUGS (2)
  1. MIRALAX [Suspect]
     Active Substance: POLYETHYLENE GLYCOL 3350
     Indication: PRODUCT USED FOR UNKNOWN INDICATION
     Route: 065
  2. TRULANCE [Suspect]
     Active Substance: PLECANATIDE
     Indication: FREQUENT BOWEL MOVEMENTS
     Route: 048

REACTIONS (3)
  - Product quality issue [Unknown]
  - Cardiac discomfort [Not Recovered/Not Resolved]
  - Drug ineffective [Unknown]
